FAERS Safety Report 8494779-X (Version None)
Quarter: 2012Q3

REPORT INFORMATION
  Report Type: 
  Country: None (occurrence: None)
  Receive Date: 20120709
  Receipt Date: 20120628
  Transmission Date: 20120928
  Serious: Yes (Other)
  Sender: FDA-Public Use
  Company Number: CA-JNJFOC-20120303695

PATIENT
  Sex: Female
  Weight: 111.59 kg

DRUGS (6)
  1. REMICADE [Suspect]
     Indication: CROHN'S DISEASE
     Route: 042
     Dates: end: 20110627
  2. REMICADE [Suspect]
     Route: 042
     Dates: start: 20120401
  3. REMICADE [Suspect]
     Indication: COLITIS ULCERATIVE
     Route: 042
  4. REMICADE [Suspect]
     Route: 042
  5. REMICADE [Suspect]
     Route: 042
     Dates: end: 20110627
  6. REMICADE [Suspect]
     Route: 042
     Dates: start: 20120401

REACTIONS (4)
  - WEIGHT INCREASED [None]
  - MATERNAL EXPOSURE DURING PREGNANCY [None]
  - CROHN'S DISEASE [None]
  - GALLBLADDER OPERATION [None]
